APPROVED DRUG PRODUCT: FORADIL CERTIHALER
Active Ingredient: FORMOTEROL FUMARATE
Strength: 0.0085MG/INH
Dosage Form/Route: POWDER;INHALATION
Application: N021592 | Product #001
Applicant: NOVARTIS PHARMACEUTICALS CORP
Approved: Dec 15, 2006 | RLD: No | RS: No | Type: DISCN